FAERS Safety Report 14667653 (Version 3)
Quarter: 2018Q2

REPORT INFORMATION
  Report Type: Spontaneous
  Country: US (occurrence: US)
  Receive Date: 20180322
  Receipt Date: 20180404
  Transmission Date: 20180711
  Serious: No
  Sender: FDA-Public Use
  Company Number: US-PFIZER INC-2018007576

PATIENT
  Age: 31 Year
  Sex: Male

DRUGS (1)
  1. XELJANZ XR [Suspect]
     Active Substance: TOFACITINIB CITRATE
     Indication: PSORIATIC ARTHROPATHY
     Dosage: 11 MG, ONCE A DAY
     Route: 048
     Dates: start: 201711

REACTIONS (11)
  - Arthralgia [Unknown]
  - Peripheral coldness [Unknown]
  - Rash [Unknown]
  - Tremor [Unknown]
  - Mental disorder [Unknown]
  - Blood urine present [Unknown]
  - Dermal cyst [Unknown]
  - Drug ineffective [Unknown]
  - Folliculitis [Unknown]
  - Product use in unapproved indication [Unknown]
  - Nervousness [Unknown]

NARRATIVE: CASE EVENT DATE: 201711
